FAERS Safety Report 7331812-2 (Version None)
Quarter: 2011Q1

REPORT INFORMATION
  Report Type: 
  Country: None (occurrence: None)
  Receive Date: 20110304
  Receipt Date: 20090929
  Transmission Date: 20110831
  Serious: Yes (Hospitalization, Other)
  Sender: FDA-Public Use
  Company Number: US-PFIZER INC-2008065199

PATIENT
  Sex: Male
  Weight: 77 kg

DRUGS (3)
  1. LIPITOR [Concomitant]
     Indication: BLOOD CHOLESTEROL
     Dosage: 10 MG, 1X/DAY
     Route: 048
  2. DILANTIN [Suspect]
     Indication: CONVULSION
     Route: 048
     Dates: start: 20050904, end: 20051129
  3. ACETAMINOPHEN [Concomitant]
     Dosage: EVERY 6 HOURS AS NEEDED

REACTIONS (1)
  - STEVENS-JOHNSON SYNDROME [None]
